FAERS Safety Report 14295519 (Version 1)
Quarter: 2017Q4

REPORT INFORMATION
  Report Type: Spontaneous
  Country: US (occurrence: US)
  Receive Date: 20171218
  Receipt Date: 20171218
  Transmission Date: 20180321
  Serious: No
  Sender: FDA-Public Use
  Company Number: US-PFIZER INC-2017536649

PATIENT
  Sex: Female

DRUGS (1)
  1. CELECOXIB. [Suspect]
     Active Substance: CELECOXIB
     Dosage: UNK

REACTIONS (6)
  - Feeling jittery [Unknown]
  - Abdominal discomfort [Unknown]
  - Inflammation [Unknown]
  - Arthralgia [Unknown]
  - Flushing [Unknown]
  - Flatulence [Unknown]
